FAERS Safety Report 8340689-8 (Version None)
Quarter: 2012Q2

REPORT INFORMATION
  Report Type: 
  Country: None (occurrence: None)
  Receive Date: 20120507
  Receipt Date: 20120426
  Transmission Date: 20120825
  Serious: Yes (Other)
  Sender: FDA-Public Use
  Company Number: US-ROCHE-1048927

PATIENT
  Sex: Female

DRUGS (6)
  1. NEUPOGEN [Concomitant]
     Dates: start: 20120403
  2. PEGASYS [Suspect]
     Indication: HEPATITIS C
     Route: 058
     Dates: start: 20120302
  3. PROCRIT [Concomitant]
     Dates: start: 20120424
  4. RIBASPHERE [Suspect]
     Indication: HEPATITIS C
     Route: 048
     Dates: start: 20120302
  5. INCIVEK [Suspect]
     Indication: HEPATITIS C
     Dates: start: 20120302
  6. LASIX [Concomitant]

REACTIONS (8)
  - MUSCLE RUPTURE [None]
  - BACK PAIN [None]
  - WHITE BLOOD CELL COUNT DECREASED [None]
  - PRODUCT QUALITY ISSUE [None]
  - NAUSEA [None]
  - UNDERDOSE [None]
  - OEDEMA PERIPHERAL [None]
  - ANAEMIA [None]
